FAERS Safety Report 8266215-X (Version None)
Quarter: 2012Q2

REPORT INFORMATION
  Report Type: 
  Country: None (occurrence: None)
  Receive Date: 20120406
  Receipt Date: 20120322
  Transmission Date: 20120825
  Serious: Yes (Hospitalization, Other)
  Sender: FDA-Public Use
  Company Number: BE-AMGEN-US111034

PATIENT
  Age: 63 Year
  Sex: Female

DRUGS (2)
  1. METHOTREXATE [Concomitant]
     Dosage: UNK
     Dates: start: 20040313, end: 20050117
  2. ENBREL [Suspect]
     Indication: RHEUMATOID ARTHRITIS
     Dosage: 25 MG, 2 TIMES/WK
     Route: 058
     Dates: start: 20040617, end: 20050101

REACTIONS (1)
  - NON-HODGKIN'S LYMPHOMA [None]
